FAERS Safety Report 7919320-9 (Version None)
Quarter: 2011Q4

REPORT INFORMATION
  Report Type: 
  Country: None (occurrence: None)
  Receive Date: 20111115
  Receipt Date: 20111115
  Transmission Date: 20120403
  Serious: No
  Sender: FDA-Public Use
  Company Number: None

PATIENT
  Sex: Female
  Weight: 74.8435 kg

DRUGS (1)
  1. SAFEWAY LICE TREATMENT SHAMPOO (COMPARE TO RID) [Suspect]
     Indication: LICE INFESTATION
     Dosage: 1 TEN MINUTE APPLICATION TO THE SCALP
     Dates: start: 20111106, end: 20111106

REACTIONS (6)
  - BODY TEMPERATURE INCREASED [None]
  - PAIN [None]
  - PRURITUS [None]
  - CHILLS [None]
  - MALAISE [None]
  - RASH [None]
